FAERS Safety Report 5266952-5 (Version None)
Quarter: 2007Q1

REPORT INFORMATION
  Report Type: 
  Country: None (occurrence: None)
  Receive Date: 20070312
  Receipt Date: 20070227
  Transmission Date: 20070707
  Serious: Yes (Hospitalization)
  Sender: FDA-Public Use
  Company Number: MEDI-00050208

PATIENT
  Age: 65 Year
  Sex: Female
  Weight: 68.4932 kg

DRUGS (4)
  1. ETHYOL (AMFIOSTINE) [Suspect]
     Indication: RADIOTHERAPY
     Dosage: 500 MG, 1 IN 1 D, SUBCUTANEOUS
     Route: 058
     Dates: start: 20061103, end: 20061110
  2. ETHYOL (AMFIOSTINE) [Suspect]
     Indication: RADIOTHERAPY
     Dosage: 500 MG, 1 IN 1 D, SUBCUTANEOUS
     Route: 058
     Dates: start: 20061111, end: 20061114
  3. INTENSITY MODULATED RADIATION THERAPY [Concomitant]
  4. ZYRTEC [Concomitant]

REACTIONS (4)
  - CHILLS [None]
  - DYSPHAGIA [None]
  - PYREXIA [None]
  - RASH [None]
